FAERS Safety Report 9332338 (Version 1)
Quarter: 2013Q2

REPORT INFORMATION
  Report Type: Report from Study
  Country: US (occurrence: US)
  Receive Date: 20130606
  Receipt Date: 20130606
  Transmission Date: 20140414
  Serious: Yes (Other)
  Sender: FDA-Public Use
  Company Number: US-ROCHE-1232025

PATIENT
  Age: 44 Year
  Sex: Female

DRUGS (2)
  1. INTERFERON ALFA-2A [Suspect]
     Indication: CHRONIC HEPATITIS C
     Route: 065
  2. RIBAVIRIN [Suspect]
     Indication: CHRONIC HEPATITIS C
     Route: 065

REACTIONS (1)
  - Sarcoidosis [Recovering/Resolving]
